FAERS Safety Report 4501630-9 (Version None)
Quarter: 2004Q3

REPORT INFORMATION
  Report Type: 
  Country: None (occurrence: None)
  Receive Date: 20040927
  Receipt Date: 20040802
  Transmission Date: 20050211
  Serious: No
  Sender: FDA-Public Use
  Company Number: US_0408104655

PATIENT
  Sex: Female
  Weight: 32 kg

DRUGS (1)
  1. STRATTERA [Suspect]
     Dosage: 25 MG DAY

REACTIONS (1)
  - PSYCHOMOTOR HYPERACTIVITY [None]
